FAERS Safety Report 7283412-0 (Version None)
Quarter: 2011Q1

REPORT INFORMATION
  Report Type: 
  Country: None (occurrence: None)
  Receive Date: 20110209
  Receipt Date: 20101008
  Transmission Date: 20110831
  Serious: No
  Sender: FDA-Public Use
  Company Number: A0885646A

PATIENT
  Age: 47 Year
  Sex: Male

DRUGS (2)
  1. PAROXETINE HCL [Suspect]
     Route: 048
  2. HEART MEDICATION [Concomitant]

REACTIONS (3)
  - ANXIETY [None]
  - MOOD SWINGS [None]
  - MALAISE [None]
